FAERS Safety Report 25873198 (Version 2)
Quarter: 2025Q4

REPORT INFORMATION
  Report Type: Spontaneous
  Country: US (occurrence: US)
  Receive Date: 20251002
  Receipt Date: 20251003
  Transmission Date: 20260117
  Serious: Yes (Other)
  Sender: PFIZER
  Company Number: US-PFIZER INC-PV202500116227

PATIENT
  Age: 57 Year
  Sex: Female

DRUGS (4)
  1. LORBRENA [Suspect]
     Active Substance: LORLATINIB
     Indication: ALK gene rearrangement positive
     Dosage: 100 MG (WAS ON IT LESS THAN A WEEK)
     Dates: start: 202409
  2. LORBRENA [Suspect]
     Active Substance: LORLATINIB
     Indication: Non-small cell lung cancer metastatic
     Dosage: 75 MG
  3. LORBRENA [Suspect]
     Active Substance: LORLATINIB
     Dosage: 50 MG
  4. LORBRENA [Suspect]
     Active Substance: LORLATINIB
     Dosage: 50 MILLIGRAMS ONE DAY, 25 THE NEXT

REACTIONS (18)
  - Neuropathy peripheral [Unknown]
  - Hallucination, visual [Unknown]
  - Off label use [Unknown]
  - Weight increased [Unknown]
  - Oedema [Unknown]
  - Peripheral swelling [Unknown]
  - Swelling face [Unknown]
  - Mood swings [Unknown]
  - Aphasia [Unknown]
  - Cognitive disorder [Unknown]
  - Sleep disorder [Unknown]
  - Abnormal dreams [Unknown]
  - Blood cholesterol increased [Unknown]
  - Brain fog [Unknown]
  - Skin discolouration [Unknown]
  - Memory impairment [Unknown]
  - Cerebral disorder [Unknown]
  - Pain [Unknown]
